FAERS Safety Report 4565165-X (Version None)
Quarter: 2005Q1

REPORT INFORMATION
  Report Type: 
  Country: None (occurrence: None)
  Receive Date: 20050127
  Receipt Date: 20050127
  Transmission Date: 20050727
  Serious: Yes (Hospitalization)
  Sender: FDA-Public Use
  Company Number: None

PATIENT
  Age: 80 Year
  Sex: Male
  Weight: 87.1 kg

DRUGS (10)
  1. LEVOTHYROXINE [Suspect]
  2. ATORVASTATIN [Concomitant]
  3. ENOXAPARIN SODIUM [Concomitant]
  4. NITROGLYCERIN [Concomitant]
  5. FUROSEMIDE [Concomitant]
  6. OMEPRAZOLE [Concomitant]
  7. IRBESARTAN [Concomitant]
  8. DIGOXIN [Concomitant]
  9. WARFARIN [Concomitant]
  10. METOPROLOL [Concomitant]

REACTIONS (1)
  - TACHYARRHYTHMIA [None]
